FAERS Safety Report 4679180-9 (Version None)
Quarter: 2005Q2

REPORT INFORMATION
  Report Type: 
  Country: None (occurrence: None)
  Receive Date: 20050526
  Receipt Date: 20050301
  Transmission Date: 20051028
  Serious: Yes (Hospitalization)
  Sender: FDA-Public Use
  Company Number: WAES 0503USA00221

PATIENT
  Age: 80 Year
  Sex: Female

DRUGS (1)
  1. VYTORIN [Suspect]
     Indication: LIPIDS INCREASED
     Dosage: 10-40 MG/DAILY/PO
     Route: 048
     Dates: end: 20050201

REACTIONS (1)
  - RHABDOMYOLYSIS [None]
